FAERS Safety Report 20048894 (Version 1)
Quarter: 2021Q4

REPORT INFORMATION
  Report Type: Spontaneous
  Country: US (occurrence: US)
  Receive Date: 20211109
  Receipt Date: 20211109
  Transmission Date: 20220303
  Serious: Yes (Other)
  Sender: FDA-Public Use
  Company Number: US-PFIZER INC-202101453740

PATIENT
  Age: 38 Year
  Sex: Female

DRUGS (2)
  1. METHIMAZOLE [Suspect]
     Active Substance: METHIMAZOLE
     Indication: Goitre
     Dosage: UNK
  2. METHIMAZOLE [Suspect]
     Active Substance: METHIMAZOLE
     Indication: Ocular icterus

REACTIONS (3)
  - Cardiac failure acute [Recovering/Resolving]
  - Liver disorder [Recovering/Resolving]
  - Rash [Unknown]
